FAERS Safety Report 6734126-4 (Version None)
Quarter: 2010Q2

REPORT INFORMATION
  Report Type: 
  Country: None (occurrence: None)
  Receive Date: 20100520
  Receipt Date: 20100517
  Transmission Date: 20101027
  Serious: Yes (Hospitalization, Other)
  Sender: FDA-Public Use
  Company Number: FR-BRISTOL-MYERS SQUIBB COMPANY-15109374

PATIENT
  Age: 80 Year
  Sex: Female

DRUGS (1)
  1. SPRYCEL [Suspect]
     Indication: CHRONIC MYELOID LEUKAEMIA
     Dosage: CAPSULES
     Route: 048
     Dates: start: 20080101, end: 20100318

REACTIONS (7)
  - ATRIAL FIBRILLATION [None]
  - HYPERTENSION [None]
  - INFECTION [None]
  - OEDEMA [None]
  - PALPITATIONS [None]
  - PERICARDITIS [None]
  - PLEURISY [None]
